FAERS Safety Report 21236395 (Version 1)
Quarter: 2022Q3

REPORT INFORMATION
  Report Type: Spontaneous
  Country: US (occurrence: US)
  Receive Date: 20220822
  Receipt Date: 20220822
  Transmission Date: 20221027
  Serious: Yes (Other)
  Sender: FDA-Public Use
  Company Number: US-MLMSERVICE-20220804-3715506-1

PATIENT
  Age: 54 Year
  Sex: Female

DRUGS (3)
  1. ETOPOSIDE [Suspect]
     Active Substance: ETOPOSIDE
     Indication: Ovarian germ cell endodermal sinus tumour
     Dosage: FOUR CYCLES
  2. CISPLATIN [Suspect]
     Active Substance: CISPLATIN
     Indication: Ovarian germ cell endodermal sinus tumour
     Dosage: FOUR CYCLES
  3. BLEOMYCIN [Suspect]
     Active Substance: BLEOMYCIN SULFATE
     Indication: Ovarian germ cell endodermal sinus tumour
     Dosage: FOUR CYCLES

REACTIONS (6)
  - Neutropenia [Unknown]
  - Asthenia [Unknown]
  - Drug intolerance [Unknown]
  - Pulmonary embolism [Unknown]
  - Tinea cruris [Unknown]
  - Off label use [Unknown]
